FAERS Safety Report 5258638-8 (Version None)
Quarter: 2007Q1

REPORT INFORMATION
  Report Type: 
  Country: None (occurrence: None)
  Receive Date: 20070305
  Receipt Date: 20070216
  Transmission Date: 20070707
  Serious: Yes (Hospitalization)
  Sender: FDA-Public Use
  Company Number: 2007BI003837

PATIENT
  Age: 42 Year
  Sex: Female

DRUGS (6)
  1. ZEVALIN [Suspect]
     Indication: BONE MARROW DISORDER
     Dosage: 0.4 MCI/KG; 1X; IV
     Route: 042
     Dates: start: 20060727, end: 20060727
  2. RITUXIMAB [Concomitant]
  3. CARMUSTINE [Concomitant]
  4. ETOPOSIDE [Concomitant]
  5. CYTARABINE [Concomitant]
  6. MELPHALAN [Concomitant]

REACTIONS (5)
  - CONDITION AGGRAVATED [None]
  - LYMPHOMA [None]
  - PYREXIA [None]
  - SPLENIC CANDIDIASIS [None]
  - SPLENIC INFARCTION [None]
